FAERS Safety Report 9161486 (Version 2)
Quarter: 2013Q2

REPORT INFORMATION
  Report Type: Spontaneous
  Country: US (occurrence: US)
  Receive Date: 20130313
  Receipt Date: 20130604
  Transmission Date: 20140414
  Serious: No
  Sender: FDA-Public Use
  Company Number: US-PFIZER INC-2013081628

PATIENT
  Sex: Male

DRUGS (2)
  1. DILANTIN [Suspect]
     Dosage: 100 MG, UNK
  2. DILANTIN [Suspect]
     Dosage: 30 MG, UNK

REACTIONS (1)
  - Barbiturates positive [Unknown]
